FAERS Safety Report 8935644 (Version 1)
Quarter: 2012Q4

REPORT INFORMATION
  Report Type: Spontaneous
  Country: US (occurrence: None)
  Receive Date: 20121128
  Receipt Date: 20121128
  Transmission Date: 20130627
  Serious: Yes (Life-Threatening, Hospitalization)
  Sender: FDA-Public Use
  Company Number: None

PATIENT
  Age: 61 Year
  Sex: Male
  Weight: 84.6 kg

DRUGS (2)
  1. CISPLATIN [Suspect]
     Indication: LUNG SQUAMOUS CELL CARCINOMA STAGE III
     Route: 042
     Dates: start: 20120716, end: 20120827
  2. ETOPOSIDE [Suspect]
     Indication: LUNG SQUAMOUS CELL CARCINOMA STAGE III
     Route: 042
     Dates: start: 20120716, end: 20120827

REACTIONS (7)
  - Odynophagia [None]
  - Pancytopenia [None]
  - Chest pain [None]
  - Candidiasis [None]
  - Dysphagia [None]
  - Hypophagia [None]
  - Fluid intake reduced [None]
